FAERS Safety Report 6637049-4 (Version None)
Quarter: 2010Q1

REPORT INFORMATION
  Report Type: 
  Country: None (occurrence: None)
  Receive Date: 20100301
  Receipt Date: 20090219
  Transmission Date: 20100710
  Serious: Yes (Other)
  Sender: FDA-Public Use
  Company Number: RB-9906-2009

PATIENT
  Sex: 0

DRUGS (1)
  1. SUBOXONE [Suspect]
     Indication: DRUG THERAPY
     Dates: end: 20090601

REACTIONS (2)
  - ASTHMA [None]
  - OBSTRUCTIVE AIRWAYS DISORDER [None]
